FAERS Safety Report 8831298 (Version 1)
Quarter: 2012Q4

REPORT INFORMATION
  Report Type: 
  Country: US (occurrence: US)
  Receive Date: 20121009
  Receipt Date: 20121009
  Transmission Date: 20130627
  Serious: Yes (Other)
  Sender: FDA-Public Use
  Company Number: PHEH2012US019510

PATIENT
  Sex: Male

DRUGS (17)
  1. EXFORGE [Suspect]
     Dosage: 1 DF, QD
     Dates: start: 2006
  2. EXFORGE [Suspect]
     Dosage: 1 DF, QD
     Dates: start: 201109
  3. AMLODIPINE [Concomitant]
     Dosage: 1 DF daily
  4. FLUTICASONE PROPIONATE [Concomitant]
     Dosage: 2 sprays in each nostril every day
     Route: 045
  5. OMEPRAZOLE [Concomitant]
     Dosage: 40 mg, QD
  6. FINASTERIDE [Concomitant]
     Dosage: UNK
  7. TAMSULOSIN [Concomitant]
     Dosage: 4 mg, QD
  8. ALLOPURINOL [Concomitant]
     Dosage: 300 mg, QD
  9. SOTALOL HYDROCHLORIDE [Concomitant]
     Dosage: 120 mg, BID
  10. MONTELUKAST SODIUM [Concomitant]
     Dosage: 10 mg, QD
  11. ZOLPIDEM TARTRATE [Concomitant]
     Dosage: UNK
  12. PRAVASTATIN [Concomitant]
     Dosage: 80 mg, QD
  13. ALPRAZOLAM [Concomitant]
     Dosage: 1 mg, TID
  14. HYDROMORPHONE [Concomitant]
     Dosage: 8 mg, PRN
  15. FISH OIL [Concomitant]
     Dosage: 1200 mg, BID
  16. LISINOPRIL [Concomitant]
     Dosage: UNK
  17. LIDOCAINE [Concomitant]
     Indication: PAIN
     Dosage: 1 DF, QMO

REACTIONS (4)
  - Upper limb fracture [Unknown]
  - Hypertension [Unknown]
  - Sinus disorder [Unknown]
  - Rhinorrhoea [Unknown]
